FAERS Safety Report 7889441-8 (Version None)
Quarter: 2011Q4

REPORT INFORMATION
  Report Type: 
  Country: None (occurrence: None)
  Receive Date: 20111101
  Receipt Date: 20111026
  Transmission Date: 20120403
  Serious: Yes (Hospitalization, Other)
  Sender: FDA-Public Use
  Company Number: 2010SP065562

PATIENT
  Age: 27 Year
  Sex: Female
  Weight: 74.8435 kg

DRUGS (2)
  1. NUVARING [Suspect]
     Indication: CONTRACEPTION
     Dates: start: 20080601, end: 20090114
  2. IBUPROFEN (ADVIL) [Concomitant]

REACTIONS (34)
  - DEPRESSION [None]
  - BUNDLE BRANCH BLOCK RIGHT [None]
  - DIPLOPIA [None]
  - PREGNANCY [None]
  - TRICUSPID VALVE INCOMPETENCE [None]
  - VERTIGO [None]
  - FIBROADENOMA OF BREAST [None]
  - PULMONARY EMBOLISM [None]
  - CARDIAC DISORDER [None]
  - BLOOD CHOLESTEROL INCREASED [None]
  - DIZZINESS [None]
  - HEPATIC STEATOSIS [None]
  - OVARIAN CYST [None]
  - ELECTROCARDIOGRAM ST-T CHANGE [None]
  - MULTIPLE INJURIES [None]
  - BACK PAIN [None]
  - OCCUPATIONAL PHYSICAL PROBLEM [None]
  - PAIN [None]
  - ANXIETY [None]
  - GESTATIONAL DIABETES [None]
  - DYSPNOEA [None]
  - UPPER RESPIRATORY TRACT INFECTION [None]
  - LUNG NEOPLASM [None]
  - INTERNATIONAL NORMALISED RATIO DECREASED [None]
  - PULMONARY FIBROSIS [None]
  - ELECTROCARDIOGRAM ABNORMAL [None]
  - HYPOTHYROIDISM [None]
  - HEADACHE [None]
  - FIBRIN D DIMER INCREASED [None]
  - MIGRAINE [None]
  - URINARY TRACT INFECTION [None]
  - ARTERIOSCLEROSIS [None]
  - CARDIOMEGALY [None]
  - MATERNAL EXPOSURE BEFORE PREGNANCY [None]
